FAERS Safety Report 14310665 (Version 1)
Quarter: 2017Q4

REPORT INFORMATION
  Report Type: Report from Study
  Country: DE (occurrence: DE)
  Receive Date: 20171220
  Receipt Date: 20171220
  Transmission Date: 20180321
  Serious: Yes (Hospitalization, Other)
  Sender: FDA-Public Use
  Company Number: DE-MYLANLABS-2017M1079853

PATIENT
  Sex: Female
  Weight: 97.5 kg

DRUGS (14)
  1. ADVANTAN [Concomitant]
     Active Substance: METHYLPREDNISOLONE ACEPONATE
     Indication: PRODUCT USED FOR UNKNOWN INDICATION
     Dosage: 0.5 %, UNK,  (IN THE MORNING AND EVENING)
     Route: 065
     Dates: start: 20141106
  2. TRAMADOL. [Concomitant]
     Active Substance: TRAMADOL
     Indication: PRODUCT USED FOR UNKNOWN INDICATION
     Dosage: 20 OT, UNK
     Route: 065
  3. METOPROLOL. [Concomitant]
     Active Substance: METOPROLOL
     Indication: PRODUCT USED FOR UNKNOWN INDICATION
     Dosage: DAILY DOSE: 47.5 MG MILLIGRAM(S) EVERY DAY
     Route: 065
     Dates: start: 20110909
  4. LATANOPROST. [Concomitant]
     Active Substance: LATANOPROST
     Indication: EYE DISORDER
     Dosage: DAILY DOSE: 1 DF DOSAGE FORM EVERY DAY
     Route: 065
     Dates: start: 20110224
  5. MAGNESIUM [Concomitant]
     Active Substance: MAGNESIUM
     Indication: PRODUCT USED FOR UNKNOWN INDICATION
     Dosage: DAILY DOSE: 300 MG MILLIGRAM(S) EVERY DAY
     Route: 065
     Dates: start: 20130314
  6. SIMVASTATIN. [Concomitant]
     Active Substance: SIMVASTATIN
     Indication: BLOOD CHOLESTEROL INCREASED
     Dosage: 20 MG (0-0-1), QD
     Route: 065
     Dates: start: 20150626
  7. EXEMESTANE. [Suspect]
     Active Substance: EXEMESTANE
     Indication: BREAST CANCER METASTATIC
     Dosage: 25 MG, QD (0-1-0)
     Route: 048
     Dates: start: 20141020, end: 20150828
  8. AFINITOR [Suspect]
     Active Substance: EVEROLIMUS
     Indication: BREAST CANCER METASTATIC
     Dosage: 10 MG (0-1-0), QD
     Route: 048
     Dates: start: 20141020, end: 20150201
  9. AFINITOR [Suspect]
     Active Substance: EVEROLIMUS
     Indication: BREAST CANCER METASTATIC
     Dosage: 10 MG (0-1-0), QD
     Route: 048
     Dates: start: 20141020, end: 20150201
  10. PANTOZOL [Concomitant]
     Active Substance: PANTOPRAZOLE SODIUM
     Indication: PRODUCT USED FOR UNKNOWN INDICATION
     Dosage: DAILY DOSE: 40 MG MILLIGRAM(S) EVERY DAY
     Route: 065
     Dates: start: 20150303
  11. ZOMETA [Concomitant]
     Active Substance: ZOLEDRONIC ACID
     Indication: PRODUCT USED FOR UNKNOWN INDICATION
     Dosage: 4 MG, UNK (EVERY HALF A YEAR, LAST ADMINISTRATION WAS ON 27 JUN 15)
     Route: 065
     Dates: start: 20101201, end: 20150627
  12. AFINITOR [Suspect]
     Active Substance: EVEROLIMUS
     Dosage: DAILY DOSE: 5 MG MILLIGRAM(S) EVERY DAY
     Route: 048
     Dates: start: 20150324, end: 20150401
  13. AFINITOR [Suspect]
     Active Substance: EVEROLIMUS
     Dosage: 5 MG, QD
     Route: 048
     Dates: start: 20150822, end: 20150828
  14. PHYSIOGEL [Concomitant]
     Indication: PRODUCT USED FOR UNKNOWN INDICATION
     Dosage: UNK, BID (IN THE MORNING AND IN THE EVENING)
     Route: 061
     Dates: start: 20141111, end: 20150713

REACTIONS (20)
  - Cough [Recovered/Resolved]
  - Wheezing [Recovered/Resolved]
  - Blood glucose abnormal [Recovered/Resolved]
  - Skin burning sensation [Recovered/Resolved]
  - Stomatitis [Recovered/Resolved]
  - Pneumonitis [Recovered/Resolved]
  - Nasopharyngitis [Recovered/Resolved]
  - PO2 decreased [Unknown]
  - Pruritus [Recovered/Resolved]
  - Lung infiltration [Recovered/Resolved]
  - Grunting [Recovered/Resolved]
  - Oxygen saturation decreased [Unknown]
  - C-reactive protein increased [Unknown]
  - Diabetes mellitus inadequate control [Recovered/Resolved]
  - Pneumonitis [Recovered/Resolved]
  - Dysgeusia [Recovered/Resolved]
  - Cough [Recovered/Resolved]
  - Blood glucose increased [Recovering/Resolving]
  - Rash [Recovered/Resolved]
  - Cough [Recovered/Resolved]

NARRATIVE: CASE EVENT DATE: 20141106
